FAERS Safety Report 5146226-3 (Version None)
Quarter: 2006Q4

REPORT INFORMATION
  Report Type: 
  Country: None (occurrence: None)
  Receive Date: 20061106
  Receipt Date: 20061106
  Transmission Date: 20070319
  Serious: Yes (Life-Threatening)
  Sender: FDA-Public Use
  Company Number: None

PATIENT
  Age: 51 Year
  Sex: Female
  Weight: 101.1521 kg

DRUGS (3)
  1. CIPRO [Suspect]
     Indication: URINARY TRACT INFECTION
     Dosage: 1 PILL BID PO
     Route: 048
     Dates: start: 20061005, end: 20061010
  2. SYNTHROID [Concomitant]
  3. DIOVAN W/HCTZ [Concomitant]

REACTIONS (9)
  - ABASIA [None]
  - ARTHRALGIA [None]
  - COMPARTMENT SYNDROME [None]
  - HYPOAESTHESIA [None]
  - INFLAMMATION [None]
  - ORTHOSIS USER [None]
  - PAIN IN EXTREMITY [None]
  - PARAESTHESIA [None]
  - TENDONITIS [None]
